FAERS Safety Report 25593663 (Version 1)
Quarter: 2025Q3

REPORT INFORMATION
  Report Type: Spontaneous
  Country: US (occurrence: US)
  Receive Date: 20250722
  Receipt Date: 20250722
  Transmission Date: 20251020
  Serious: Yes (Other)
  Sender: ALEXION PHARMACEUTICALS
  Company Number: US-ASTRAZENECA-202507GLO012401US

PATIENT
  Age: 65 Year
  Sex: Male

DRUGS (11)
  1. NEXIUM [Suspect]
     Active Substance: ESOMEPRAZOLE MAGNESIUM
     Route: 065
  2. GLUCOPHAGE [Concomitant]
     Active Substance: METFORMIN HYDROCHLORIDE
  3. COZAAR [Concomitant]
     Active Substance: LOSARTAN POTASSIUM
  4. METOPROLOL SUCCINATE [Concomitant]
     Active Substance: METOPROLOL SUCCINATE
  5. VASCEPA [Concomitant]
     Active Substance: ICOSAPENT ETHYL
  6. TESTOSTERONE [Concomitant]
     Active Substance: TESTOSTERONE
  7. ASPIRIN [Concomitant]
     Active Substance: ASPIRIN
  8. CRESTOR [Concomitant]
     Active Substance: ROSUVASTATIN CALCIUM
  9. OZEMPIC [Concomitant]
     Active Substance: SEMAGLUTIDE
  10. SILDENAFIL [Concomitant]
     Active Substance: SILDENAFIL
  11. CHOLECALCIFEROL [Concomitant]
     Active Substance: CHOLECALCIFEROL

REACTIONS (4)
  - Gastric cancer [Unknown]
  - Gastrointestinal stromal tumour [Unknown]
  - Neuroendocrine carcinoma metastatic [Unknown]
  - Metastasis [Unknown]

NARRATIVE: CASE EVENT DATE: 20250224
